FAERS Safety Report 11310008 (Version 3)
Quarter: 2015Q4

REPORT INFORMATION
  Report Type: Spontaneous
  Country: US (occurrence: US)
  Receive Date: 20150724
  Receipt Date: 20151210
  Transmission Date: 20160304
  Serious: No
  Sender: FDA-Public Use
  Company Number: US-AMGEN-USASP2015072693

PATIENT
  Age: 62 Year
  Sex: Female

DRUGS (1)
  1. ENBREL [Suspect]
     Active Substance: ETANERCEPT
     Indication: RHEUMATOID ARTHRITIS
     Dosage: 50 MG, QWK
     Route: 058
     Dates: start: 201506

REACTIONS (6)
  - Drug ineffective [Unknown]
  - Pruritus [Unknown]
  - Rash [Recovered/Resolved]
  - Dermatitis contact [Recovered/Resolved]
  - Herpes zoster [Unknown]
  - Blister [Unknown]

NARRATIVE: CASE EVENT DATE: 2015
